FAERS Safety Report 5816358-2 (Version None)
Quarter: 2008Q3

REPORT INFORMATION
  Report Type: 
  Country: None (occurrence: None)
  Receive Date: 20080721
  Receipt Date: 20080226
  Transmission Date: 20090109
  Serious: No
  Sender: FDA-Public Use
  Company Number: US-BAUSCH-2008BL000869

PATIENT
  Age: 49 Year
  Sex: Female

DRUGS (6)
  1. OPCON-A [Suspect]
     Indication: OFF LABEL USE
     Route: 047
     Dates: start: 20080208, end: 20080208
  2. OPCON-A [Suspect]
     Indication: KERATOCONJUNCTIVITIS SICCA
     Route: 047
     Dates: start: 20080208, end: 20080208
  3. OPCON-A [Suspect]
     Route: 047
     Dates: start: 20080213, end: 20080213
  4. OPCON-A [Suspect]
     Route: 047
     Dates: start: 20080213, end: 20080213
  5. OPCON-A [Suspect]
     Route: 047
     Dates: start: 20080226, end: 20080226
  6. OPCON-A [Suspect]
     Route: 047
     Dates: start: 20080226, end: 20080226

REACTIONS (1)
  - MYDRIASIS [None]
